FAERS Safety Report 17590574 (Version 1)
Quarter: 2020Q1

REPORT INFORMATION
  Report Type: Other
  Country: DE (occurrence: DE)
  Receive Date: 20200327
  Receipt Date: 20200327
  Transmission Date: 20200409
  Serious: Yes (Other)
  Sender: FDA-Public Use
  Company Number: DE-MACLEODS PHARMACEUTICALS US LTD-MAC2020025891

PATIENT

DRUGS (3)
  1. CANDESARTAN 16 MG [Suspect]
     Active Substance: CANDESARTAN
     Indication: HYPERTENSION
     Dosage: 16 MILLIGRAM, QD, 14. - 28.2. GESTATIONAL WEEK
     Route: 048
     Dates: start: 20190617, end: 20190925
  2. MIFEGYNE [Concomitant]
     Active Substance: MIFEPRISTONE
     Indication: ABORTION INDUCED
     Dosage: 600 MILLIGRAM, QD, 31.3. - 31.3. GESTATIONAL WEEK
     Route: 048
     Dates: start: 20191017, end: 20191017
  3. VALSARTAN 160 MG [Interacting]
     Active Substance: VALSARTAN
     Indication: HYPERTENSION
     Dosage: 160 MILLIGRAM, QD, 0. - 13.6. GESTATIONAL WEEK
     Route: 048
     Dates: start: 20190311, end: 20190616

REACTIONS (2)
  - Drug interaction [Unknown]
  - Oligohydramnios [Not Recovered/Not Resolved]
